FAERS Safety Report 20014270 (Version 1)
Quarter: 2021Q4

REPORT INFORMATION
  Report Type: Spontaneous
  Country: US (occurrence: US)
  Receive Date: 20211029
  Receipt Date: 20211029
  Transmission Date: 20220303
  Serious: No
  Sender: FDA-Public Use
  Company Number: US-HORIZON THERAPEUTICS-HZN-2021-005879

PATIENT
  Sex: Male

DRUGS (1)
  1. TEPEZZA [Suspect]
     Active Substance: TEPROTUMUMAB-TRBW
     Indication: Endocrine ophthalmopathy
     Dosage: 1400 MG, SOLUTION FOR INJECTION, INTRAVENOUS
     Route: 042
     Dates: start: 20210429

REACTIONS (2)
  - Limb discomfort [Recovering/Resolving]
  - Injection site extravasation [Recovering/Resolving]
